FAERS Safety Report 6093589-0 (Version None)
Quarter: 2009Q1

REPORT INFORMATION
  Report Type: 
  Country: None (occurrence: None)
  Receive Date: 20090226
  Receipt Date: 20090219
  Transmission Date: 20090719
  Serious: Yes (Other)
  Sender: FDA-Public Use
  Company Number: US-TEVA-185784USA

PATIENT
  Sex: Female

DRUGS (3)
  1. METOCLOPRAMIDE [Suspect]
     Indication: GASTROOESOPHAGEAL REFLUX DISEASE
     Dates: start: 20090106, end: 20090126
  2. CONJUGATED ESTROGENS [Concomitant]
  3. PARACETAMOL [Concomitant]
     Dosage: PRN

REACTIONS (13)
  - AGITATION [None]
  - ANXIETY [None]
  - BLOOD PRESSURE INCREASED [None]
  - BODY TEMPERATURE DECREASED [None]
  - DEHYDRATION [None]
  - FEELING JITTERY [None]
  - HEART RATE INCREASED [None]
  - MUSCLE RIGIDITY [None]
  - MUSCLE SPASMS [None]
  - MYDRIASIS [None]
  - POLLAKIURIA [None]
  - SEROTONIN SYNDROME [None]
  - TEMPERATURE INTOLERANCE [None]
